FAERS Safety Report 4321876-2 (Version None)
Quarter: 2004Q1

REPORT INFORMATION
  Report Type: 
  Country: None (occurrence: None)
  Receive Date: 20040323
  Receipt Date: 20030925
  Transmission Date: 20041129
  Serious: Yes (Hospitalization)
  Sender: FDA-Public Use
  Company Number: 200313614FR

PATIENT
  Age: 42 Year
  Sex: Female

DRUGS (8)
  1. RODOGYL [Suspect]
     Indication: PYREXIA
     Route: 048
     Dates: start: 20030630, end: 20030701
  2. FLUISEDAL [Concomitant]
     Indication: ERYTHEMA
     Route: 048
     Dates: start: 20030701, end: 20030701
  3. PHOSPHALUGEL [Concomitant]
     Indication: ABDOMINAL PAIN
     Route: 048
     Dates: start: 20030701, end: 20030701
  4. RHINOFLUIMUCIL [Concomitant]
     Indication: RHINITIS
     Route: 055
     Dates: start: 20030701, end: 20030701
  5. TEXODIL [Concomitant]
     Indication: PYREXIA
     Route: 048
     Dates: start: 20030701, end: 20030701
  6. SERETIDE [Concomitant]
     Indication: ASTHMA
  7. ACETAMINOPHEN [Concomitant]
  8. NUREFLEX [Concomitant]
     Indication: HEADACHE
     Route: 048
     Dates: start: 20030626, end: 20030626

REACTIONS (3)
  - ABDOMINAL PAIN UPPER [None]
  - EPSTEIN-BARR VIRUS INFECTION [None]
  - ERYTHEMA MULTIFORME [None]
